FAERS Safety Report 4865589-7 (Version None)
Quarter: 2005Q4

REPORT INFORMATION
  Report Type: 
  Country: None (occurrence: None)
  Receive Date: 20051220
  Receipt Date: 20051213
  Transmission Date: 20060501
  Serious: Yes (Life-Threatening, Other)
  Sender: FDA-Public Use
  Company Number: FR200511002720

PATIENT
  Age: 76 Year
  Sex: Male
  Weight: 66 kg

DRUGS (2)
  1. ALIMTA [Suspect]
     Indication: PLEURAL MESOTHELIOMA MALIGNANT
     Dosage: 900 MG OTHER INTRAVENOUS
     Route: 042
     Dates: start: 20050926
  2. CISPLATIN [Concomitant]

REACTIONS (3)
  - BONE MARROW FAILURE [None]
  - MUCOSAL INFLAMMATION [None]
  - PYREXIA [None]
